FAERS Safety Report 23306788 (Version 1)
Quarter: 2023Q4

REPORT INFORMATION
  Report Type: Spontaneous
  Country: DE (occurrence: DE)
  Receive Date: 20231218
  Receipt Date: 20231218
  Transmission Date: 20240110
  Serious: Yes (Hospitalization)
  Sender: FDA-Public Use
  Company Number: DE-AMGEN-DEUSP2023223425

PATIENT
  Age: 60 Year
  Sex: Male
  Weight: 80 kg

DRUGS (17)
  1. BEVACIZUMAB [Suspect]
     Active Substance: BEVACIZUMAB
     Indication: Product used for unknown indication
     Dosage: 637.5 MILLIGRAM, Q3WK
     Route: 040
     Dates: start: 20220622
  2. BEVACIZUMAB [Suspect]
     Active Substance: BEVACIZUMAB
     Dosage: 637.5 MILLIGRAM, Q3WK
     Route: 040
     Dates: start: 20230105
  3. BEVACIZUMAB [Suspect]
     Active Substance: BEVACIZUMAB
     Dosage: 637.5 MILLIGRAM, Q3WK
     Route: 040
     Dates: start: 20230126
  4. FLUOROURACIL [Suspect]
     Active Substance: FLUOROURACIL
     Indication: Neoplasm malignant
     Dosage: 3780 MILLIGRAM
     Route: 040
     Dates: start: 20230301, end: 20230418
  5. LEUCOVORIN CALCIUM [Suspect]
     Active Substance: LEUCOVORIN CALCIUM
     Indication: Neoplasm malignant
     Dosage: UNK UNK, Q2WK
     Route: 040
     Dates: start: 20230301, end: 20230418
  6. LEUCOVORIN [Suspect]
     Active Substance: LEUCOVORIN\LEUCOVORIN CALCIUM
     Indication: Product used for unknown indication
     Dosage: DOSE OF LAST ADMINISTERED PRIOR TO AE/SAE ONSET 840 MGDATE OF MOST RECENT DOSE PRIOR TO AE/SAE ONSET
     Route: 040
     Dates: start: 20230301, end: 20230418
  7. AFLIBERCEPT [Suspect]
     Active Substance: AFLIBERCEPT
     Indication: Neoplasm malignant
     Dosage: 336 MILLIGRAM
     Route: 040
     Dates: start: 20230301, end: 20230418
  8. CAPECITABINE [Suspect]
     Active Substance: CAPECITABINE
     Indication: Neoplasm malignant
     Dosage: 1000 MILLIGRAM
     Route: 040
     Dates: start: 20220622
  9. CAPECITABINE [Suspect]
     Active Substance: CAPECITABINE
     Dosage: 1000 MILLIGRAM
     Route: 042
     Dates: start: 20230105
  10. CAPECITABINE [Suspect]
     Active Substance: CAPECITABINE
     Dosage: 1000 MILLIGRAM
     Route: 042
     Dates: start: 20230126
  11. IRINOTECAN [Suspect]
     Active Substance: IRINOTECAN
     Indication: Product used for unknown indication
     Dosage: 238.5 MILLIGRAM
     Route: 042
     Dates: start: 20230301
  12. IRINOTECAN [Suspect]
     Active Substance: IRINOTECAN
     Dosage: 238.5 MILLIGRAM
     Route: 042
     Dates: start: 20230418
  13. ONDANSETRON [Concomitant]
     Active Substance: ONDANSETRON
     Dates: start: 20220316
  14. LOPERAMIDE [Concomitant]
     Active Substance: LOPERAMIDE
     Dates: start: 20220615
  15. CHOLECALCIFEROL [Concomitant]
     Active Substance: CHOLECALCIFEROL
     Dosage: 1 TIMES IN 1 WEEK20.000 IE
     Dates: start: 20211223
  16. SELENIUM [Concomitant]
     Active Substance: SELENIUM
     Dates: start: 20220316
  17. METOCLOPRAMIDE [Concomitant]
     Active Substance: METOCLOPRAMIDE
     Dosage: 1-0-110 MG 2 TIMES IN 1 DAY
     Dates: start: 20220316

REACTIONS (2)
  - Cholecystitis [Recovered/Resolved]
  - Cholecystitis [Recovered/Resolved]

NARRATIVE: CASE EVENT DATE: 20230110
